FAERS Safety Report 18746599 (Version 2)
Quarter: 2021Q4

REPORT INFORMATION
  Report Type: Spontaneous
  Country: US (occurrence: US)
  Receive Date: 20210115
  Receipt Date: 20211128
  Transmission Date: 20220303
  Serious: Yes (Other)
  Sender: FDA-Public Use
  Company Number: US-PURDUE-USA-2020-0188923

PATIENT

DRUGS (1)
  1. MS CONTIN [Suspect]
     Active Substance: MORPHINE SULFATE
     Indication: Exposure via father
     Dosage: UNKNOWN DOSE
     Route: 064

REACTIONS (2)
  - Exposure via father [Recovered/Resolved]
  - Drug withdrawal syndrome neonatal [Unknown]
